FAERS Safety Report 5013853-3 (Version None)
Quarter: 2006Q2

REPORT INFORMATION
  Report Type: 
  Country: None (occurrence: None)
  Receive Date: 20060525
  Receipt Date: 20060522
  Transmission Date: 20061013
  Serious: Yes (Life-Threatening, Hospitalization, Other)
  Sender: FDA-Public Use
  Company Number: HQWYE457722MAY06

PATIENT
  Age: 11 Month
  Sex: Male

DRUGS (4)
  1. ADVIL [Suspect]
     Indication: PYREXIA
     Dosage: ONE INTAKE AT 12:00 NOON ORAL
     Route: 048
     Dates: start: 20060215, end: 20060215
  2. ADVIL [Suspect]
     Indication: RHINITIS
     Dosage: ONE INTAKE AT 12:00 NOON ORAL
     Route: 048
     Dates: start: 20060215, end: 20060215
  3. ASPEGIC 1000 [Suspect]
     Indication: PYREXIA
     Dosage: ONE INTAKE AT 5:00 PM
     Dates: start: 20060215, end: 20060215
  4. ASPEGIC 1000 [Suspect]
     Indication: RHINITIS
     Dosage: ONE INTAKE AT 5:00 PM
     Dates: start: 20060215, end: 20060215

REACTIONS (18)
  - APNOEA [None]
  - BACTERIAL INFECTION [None]
  - C-REACTIVE PROTEIN INCREASED [None]
  - COUGH [None]
  - CULTURE URINE POSITIVE [None]
  - CYANOSIS [None]
  - DARK CIRCLES UNDER EYES [None]
  - DYSPNOEA [None]
  - EYE DISORDER [None]
  - EYE MOVEMENT DISORDER [None]
  - FONTANELLE BULGING [None]
  - LYMPHADENOPATHY [None]
  - MALAISE [None]
  - PLATELET COUNT INCREASED [None]
  - SCAR [None]
  - VOMITING [None]
  - WHITE BLOOD CELL COUNT INCREASED [None]
  - WHITE BLOOD CELLS URINE POSITIVE [None]
